FAERS Safety Report 4577986-8 (Version None)
Quarter: 2005Q1

REPORT INFORMATION
  Report Type: 
  Country: None (occurrence: None)
  Receive Date: 20050211
  Receipt Date: 20050131
  Transmission Date: 20050727
  Serious: Yes (Hospitalization)
  Sender: FDA-Public Use
  Company Number: DE-JNJFOC-20050100986

PATIENT
  Age: 63 Year
  Sex: Female
  Weight: 58 kg

DRUGS (5)
  1. INFLIXIMAB [Suspect]
     Route: 042
  2. INFLIXIMAB [Suspect]
     Indication: RHEUMATOID ARTHRITIS
     Route: 042
  3. CYCLOSPORINE [Concomitant]
     Route: 049
  4. AZATHIOPRINE [Concomitant]
     Dosage: UNKNOWN IF THERAPY COMMENCED IN OCT OR NOV.
     Route: 049
  5. PREDNISOLONE [Concomitant]
     Route: 049

REACTIONS (1)
  - DEMYELINATION [None]
